FAERS Safety Report 8333912-7 (Version None)
Quarter: 2012Q2

REPORT INFORMATION
  Report Type: 
  Country: None (occurrence: None)
  Receive Date: 20120503
  Receipt Date: 20120425
  Transmission Date: 20120825
  Serious: Yes (Other)
  Sender: FDA-Public Use
  Company Number: CA-ROCHE-1047962

PATIENT
  Sex: Female

DRUGS (4)
  1. AVASTIN [Suspect]
     Indication: GLIOBLASTOMA
     Route: 042
     Dates: start: 20111122
  2. AVASTIN [Suspect]
     Route: 042
     Dates: start: 20120314
  3. AVASTIN [Suspect]
     Route: 042
     Dates: start: 20120202
  4. AVASTIN [Suspect]
     Route: 042
     Dates: start: 20111222

REACTIONS (5)
  - DISEASE PROGRESSION [None]
  - CONVULSION [None]
  - GENERAL PHYSICAL HEALTH DETERIORATION [None]
  - MEMORY IMPAIRMENT [None]
  - ALOPECIA [None]
